FAERS Safety Report 25142788 (Version 1)
Quarter: 2025Q1

REPORT INFORMATION
  Report Type: Spontaneous
  Country: PR (occurrence: PR)
  Receive Date: 20250331
  Receipt Date: 20250331
  Transmission Date: 20250409
  Serious: Yes (Other)
  Sender: BRISTOL-MYERS SQUIBB COMPANY
  Company Number: PR-BRISTOL-MYERS SQUIBB COMPANY-2025-043133

PATIENT
  Age: 72 Year
  Sex: Female

DRUGS (2)
  1. REVLIMID [Suspect]
     Active Substance: LENALIDOMIDE
     Indication: Myelodysplastic syndrome with single lineage dysplasia
     Route: 048
     Dates: start: 202502, end: 20250320
  2. REVLIMID [Suspect]
     Active Substance: LENALIDOMIDE
     Indication: Lung neoplasm malignant

REACTIONS (2)
  - Drug ineffective [Unknown]
  - Platelet count decreased [Unknown]
